FAERS Safety Report 23843097 (Version 1)
Quarter: 2024Q2

REPORT INFORMATION
  Report Type: Spontaneous
  Country: US (occurrence: US)
  Receive Date: 20240510
  Receipt Date: 20240510
  Transmission Date: 20240717
  Serious: Yes (Hospitalization, Other)
  Sender: FDA-Public Use
  Company Number: US-SA-SAC20240509000985

PATIENT
  Age: 25 Year
  Sex: Male

DRUGS (2)
  1. ELOCTATE [Suspect]
     Active Substance: EFMOROCTOCOG ALFA
     Indication: Haemorrhage
     Dosage: 3250 IU, PRN
  2. ELOCTATE [Suspect]
     Active Substance: EFMOROCTOCOG ALFA
     Indication: Haemorrhage
     Dosage: 3250 IU, PRN

REACTIONS (15)
  - Clostridium difficile infection [Unknown]
  - Diarrhoea [Unknown]
  - Haematochezia [Unknown]
  - Palpitations [Unknown]
  - Presyncope [Unknown]
  - Dizziness [Unknown]
  - Fatigue [Unknown]
  - Gastric mucosal lesion [Unknown]
  - Gait disturbance [Unknown]
  - Oedema peripheral [Unknown]
  - Pain [Unknown]
  - Limb discomfort [Unknown]
  - Pain in extremity [Unknown]
  - Arthralgia [Unknown]
  - Joint swelling [Unknown]

NARRATIVE: CASE EVENT DATE: 20221101
